FAERS Safety Report 8250497-4 (Version None)
Quarter: 2012Q2

REPORT INFORMATION
  Report Type: 
  Country: None (occurrence: None)
  Receive Date: 20120402
  Receipt Date: 20120402
  Transmission Date: 20120825
  Serious: Yes (Life-Threatening, Hospitalization)
  Sender: FDA-Public Use
  Company Number: None

PATIENT
  Age: 82 Year
  Sex: Male
  Weight: 77.11 kg

DRUGS (1)
  1. PRADAXA [Suspect]
     Indication: ATRIAL FIBRILLATION
     Dosage: ONE CAPPSUL TWICE A DAY
     Route: 048
     Dates: start: 20111107, end: 20120209

REACTIONS (9)
  - ASTHENIA [None]
  - HYPOAESTHESIA [None]
  - CEREBROVASCULAR ACCIDENT [None]
  - CERVICAL SPINAL STENOSIS [None]
  - CEREBRAL HAEMORRHAGE [None]
  - NECK PAIN [None]
  - FAECAL INCONTINENCE [None]
  - UNRESPONSIVE TO STIMULI [None]
  - SPINAL CORD HAEMORRHAGE [None]
